FAERS Safety Report 20663242 (Version 1)
Quarter: 2022Q2

REPORT INFORMATION
  Report Type: Spontaneous
  Country: US (occurrence: US)
  Receive Date: 20220401
  Receipt Date: 20220401
  Transmission Date: 20220721
  Serious: No
  Sender: FDA-Public Use
  Company Number: US-GSKCCFUS-Case-01332362_AE-77445

PATIENT
  Age: 79 Year
  Sex: Female

DRUGS (1)
  1. BREO ELLIPTA [Suspect]
     Active Substance: FLUTICASONE FUROATE\VILANTEROL TRIFENATATE
     Indication: Product used for unknown indication
     Dosage: 1 PUFF(S), QD (200/25)
     Route: 055
     Dates: start: 20220325

REACTIONS (3)
  - Oropharyngeal pain [Unknown]
  - Wrong technique in device usage process [Unknown]
  - Product confusion [Unknown]

NARRATIVE: CASE EVENT DATE: 20220301
